FAERS Safety Report 21297555 (Version 3)
Quarter: 2022Q3

REPORT INFORMATION
  Report Type: Report from Study
  Country: US (occurrence: US)
  Receive Date: 20220906
  Receipt Date: 20220909
  Transmission Date: 20221026
  Serious: Yes (Other)
  Sender: FDA-Public Use
  Company Number: NVSC2022US200249

PATIENT
  Sex: Female
  Weight: 126.53 kg

DRUGS (2)
  1. TREPROSTINIL [Suspect]
     Active Substance: TREPROSTINIL
     Indication: Pulmonary arterial hypertension
     Dosage: UNK, CONT (30 NG/KG/MIN)
     Route: 042
     Dates: start: 20220822
  2. TADALAFIL [Concomitant]
     Active Substance: TADALAFIL
     Indication: Product used for unknown indication
     Dosage: UNK
     Route: 065

REACTIONS (7)
  - Venous haemorrhage [Unknown]
  - Paraesthesia oral [Unknown]
  - Oral pain [Unknown]
  - Taste disorder [Unknown]
  - Dyspnoea exertional [Unknown]
  - Catheter site haemorrhage [Unknown]
  - Drug ineffective [Unknown]
